FAERS Safety Report 15498954 (Version 2)
Quarter: 2018Q4

REPORT INFORMATION
  Report Type: Spontaneous
  Country: FR (occurrence: FR)
  Receive Date: 20181015
  Receipt Date: 20181213
  Transmission Date: 20190205
  Serious: Yes (Hospitalization)
  Sender: FDA-Public Use
  Company Number: FR-FERRINGPH-2018FE05524

PATIENT

DRUGS (2)
  1. DINOPROSTONE. [Suspect]
     Active Substance: DINOPROSTONE
     Indication: ABORTED PREGNANCY
     Dosage: 6 TABLETS
     Route: 048
  2. IBUPROFENE [Suspect]
     Active Substance: IBUPROFEN
     Indication: POISONING DELIBERATE
     Dosage: 3.4 G, DAILY
     Route: 048
     Dates: start: 20180714, end: 20180714

REACTIONS (5)
  - Headache [Recovered/Resolved]
  - Abdominal pain upper [Recovered/Resolved]
  - Vertigo [Recovered/Resolved]
  - Product use in unapproved indication [Unknown]
  - Abortion induced [Not Recovered/Not Resolved]

NARRATIVE: CASE EVENT DATE: 20180713
